FAERS Safety Report 8021364-6 (Version None)
Quarter: 2012Q1

REPORT INFORMATION
  Report Type: 
  Country: None (occurrence: None)
  Receive Date: 20120104
  Receipt Date: 20120104
  Transmission Date: 20120608
  Serious: Yes (Other)
  Sender: FDA-Public Use
  Company Number: US-PFIZER INC-2011316879

PATIENT
  Sex: Male
  Weight: 96.145 kg

DRUGS (10)
  1. ZOLOFT [Suspect]
     Indication: APATHY
     Dosage: 100 MG, DAILY
  2. TIZANIDINE [Concomitant]
     Indication: MUSCLE RELAXANT THERAPY
     Dosage: 4 MG, AS NEEDED
  3. ZOLOFT [Suspect]
     Indication: DECREASED INTEREST
     Dosage: 50 MG, DAILY
  4. METHADONE [Suspect]
     Indication: PAIN MANAGEMENT
     Dosage: UNK
  5. DILAUDID [Suspect]
     Indication: PAIN MANAGEMENT
     Dosage: UNK
  6. ZOLOFT [Suspect]
     Dosage: UNK
  7. CODEINE [Suspect]
     Indication: PAIN MANAGEMENT
     Dosage: UNK
  8. GABAPENTIN [Concomitant]
     Dosage: 300 MG, 3X/DAY
  9. CLONAZEPAM [Concomitant]
     Dosage: 1 MG, 2X/DAY
  10. PERCOCET [Suspect]
     Indication: PAIN MANAGEMENT
     Dosage: UNK
     Route: 048

REACTIONS (7)
  - ABDOMINAL PAIN [None]
  - HERNIA [None]
  - HEPATIC STEATOSIS [None]
  - HEADACHE [None]
  - BACK DISORDER [None]
  - LUNG DISORDER [None]
  - CYST [None]
